FAERS Safety Report 7070486-5 (Version None)
Quarter: 2010Q4

REPORT INFORMATION
  Report Type: 
  Country: None (occurrence: None)
  Receive Date: 20101027
  Receipt Date: 20101027
  Transmission Date: 20110411
  Serious: No
  Sender: FDA-Public Use
  Company Number: None

PATIENT
  Age: 81 Year
  Sex: Female
  Weight: 58.0604 kg

DRUGS (2)
  1. RECLAST [Suspect]
     Indication: OSTEOPENIA
     Dosage: INFUSION ONE TIME PER YEAR IV
     Route: 042
     Dates: start: 20080623, end: 20080623
  2. RECLAST [Suspect]
     Indication: OSTEOPENIA
     Dosage: INFUSION ONE TIME PER YEAR IV
     Route: 042
     Dates: start: 20090623, end: 20090623

REACTIONS (3)
  - FEMUR FRACTURE [None]
  - FOOT FRACTURE [None]
  - SPINAL FRACTURE [None]
